FAERS Safety Report 8558143-7 (Version None)
Quarter: 2012Q3

REPORT INFORMATION
  Report Type: 
  Country: None (occurrence: None)
  Receive Date: 20120801
  Receipt Date: 20120718
  Transmission Date: 20120928
  Serious: No
  Sender: FDA-Public Use
  Company Number: US-ASTRAZENECA-2012SE50825

PATIENT
  Age: 58 Year
  Sex: Female

DRUGS (2)
  1. LISINOPRIL [Suspect]
     Route: 048
  2. TOPROL-XL [Suspect]
     Route: 048

REACTIONS (2)
  - HYPERTENSION [None]
  - THYROID DISORDER [None]
